FAERS Safety Report 7708979-7 (Version None)
Quarter: 2011Q3

REPORT INFORMATION
  Report Type: 
  Country: None (occurrence: None)
  Receive Date: 20110825
  Receipt Date: 20110820
  Transmission Date: 20111222
  Serious: Yes (Death)
  Sender: FDA-Public Use
  Company Number: IN-SANOFI-AVENTIS-2011SA053424

PATIENT
  Age: 65 Year
  Sex: Male
  Weight: 66 kg

DRUGS (5)
  1. CHLORHEXIDINE GLUCONATE [Concomitant]
     Indication: PROPHYLAXIS
     Dosage: DOSE:2 TEASPOON(S)
     Route: 048
     Dates: start: 20110809, end: 20110815
  2. PROPRANOLOL [Concomitant]
     Route: 048
     Dates: start: 20090101, end: 20110815
  3. DOCETAXEL [Suspect]
     Indication: HEAD AND NECK CANCER
     Route: 042
     Dates: start: 20110809, end: 20110809
  4. MULTI-VITAMINS [Concomitant]
     Indication: PROPHYLAXIS
     Route: 048
     Dates: start: 20110809, end: 20110815
  5. PANTOPRAZOLE [Concomitant]
     Indication: PROPHYLAXIS
     Route: 048
     Dates: start: 20110809, end: 20110815

REACTIONS (1)
  - DEATH [None]
